FAERS Safety Report 21636782 (Version 2)
Quarter: 2022Q4

REPORT INFORMATION
  Report Type: Other
  Country: US (occurrence: None)
  Receive Date: 20221124
  Receipt Date: 20221130
  Transmission Date: 20230113
  Serious: Yes (Other)
  Sender: FDA-Public Use
  Company Number: US-ROCHE-3222316

PATIENT
  Age: 47 Year
  Sex: Male

DRUGS (2)
  1. OCREVUS [Suspect]
     Active Substance: OCRELIZUMAB
     Indication: Multiple sclerosis
     Dosage: DATE OF SERVICE: 03/JAN/2022 AND 08/JUN/2022
     Route: 042
  2. BETAMETHASONE [Concomitant]
     Active Substance: BETAMETHASONE

REACTIONS (2)
  - Urinary tract infection [Unknown]
  - COVID-19 [Unknown]

NARRATIVE: CASE EVENT DATE: 20220914
